FAERS Safety Report 18886473 (Version 7)
Quarter: 2024Q1

REPORT INFORMATION
  Report Type: Report from Study
  Country: CA (occurrence: CA)
  Receive Date: 20210212
  Receipt Date: 20240229
  Transmission Date: 20240409
  Serious: Yes (Other)
  Sender: FDA-Public Use
  Company Number: CA-NOVARTISPH-PHHY2017CA186787

PATIENT
  Age: 22 Year
  Sex: Male

DRUGS (5)
  1. ILARIS [Suspect]
     Active Substance: CANAKINUMAB
     Indication: Muckle-Wells syndrome
     Dosage: 150 MG, EVERY 7 WEEKS, VIALS
     Route: 058
     Dates: start: 20150205
  2. ILARIS [Suspect]
     Active Substance: CANAKINUMAB
     Dosage: UNK
     Route: 065
     Dates: start: 20171031
  3. ILARIS [Suspect]
     Active Substance: CANAKINUMAB
     Dosage: 150 MG, EVERY 7 WEEKS
     Route: 058
     Dates: start: 20180404
  4. ILARIS [Suspect]
     Active Substance: CANAKINUMAB
     Dosage: 150 MG, EVERY 7 WEEKS
     Route: 058
     Dates: start: 20190819
  5. ILARIS [Suspect]
     Active Substance: CANAKINUMAB
     Dosage: 150 MG, EVERY 7 WEEKS
     Route: 058
     Dates: start: 20210108

REACTIONS (31)
  - Haemolysis [Unknown]
  - Deafness [Unknown]
  - Loss of consciousness [Unknown]
  - Vitreous floaters [Unknown]
  - Inflammatory marker increased [Unknown]
  - Illness [Recovering/Resolving]
  - Seasonal allergy [Unknown]
  - Mite allergy [Unknown]
  - Allergy to plants [Unknown]
  - Oral allergy syndrome [Unknown]
  - Food allergy [Unknown]
  - Allergy to animal [Unknown]
  - Sluggishness [Unknown]
  - Fatigue [Recovered/Resolved]
  - Asthenia [Unknown]
  - Rash [Unknown]
  - Weight increased [Unknown]
  - Ocular discomfort [Unknown]
  - Arthralgia [Unknown]
  - Malaise [Recovered/Resolved]
  - Eye disorder [Unknown]
  - Myalgia [Unknown]
  - Chills [Unknown]
  - Urticaria [Unknown]
  - Decreased appetite [Unknown]
  - Pyrexia [Unknown]
  - Arthritis [Unknown]
  - Serum amyloid A protein increased [Unknown]
  - Inappropriate schedule of product administration [Unknown]
  - Therapeutic product effect decreased [Unknown]
  - Depression [Unknown]

NARRATIVE: CASE EVENT DATE: 20180216
